FAERS Safety Report 4941550-9 (Version None)
Quarter: 2006Q1

REPORT INFORMATION
  Report Type: 
  Country: None (occurrence: None)
  Receive Date: 20060310
  Receipt Date: 20060310
  Transmission Date: 20060701
  Serious: Yes (Hospitalization)
  Sender: FDA-Public Use
  Company Number: None

PATIENT
  Age: 82 Year
  Sex: Male

DRUGS (6)
  1. CYTOXAN [Suspect]
     Indication: NON-HODGKIN'S LYMPHOMA
     Dosage: 750MG/M2 DAY 1
     Dates: start: 20060222
  2. ADRIAMYCIN PFS [Suspect]
     Indication: NON-HODGKIN'S LYMPHOMA
     Dosage: 50MG/M2  DAY 1
     Dates: start: 20060222
  3. VINCRISTINE [Suspect]
     Indication: NON-HODGKIN'S LYMPHOMA
     Dosage: 1.4 MG/M2  DAY 1
     Dates: start: 20060222
  4. PREDNISONE [Suspect]
     Indication: NON-HODGKIN'S LYMPHOMA
     Dosage: 100MG  PO  DAY 1-5
     Route: 048
     Dates: start: 20060222, end: 20060226
  5. RITUXAN [Suspect]
     Indication: NON-HODGKIN'S LYMPHOMA
     Dosage: 375MG/M2  DAY 1
     Dates: start: 20060222
  6. NEULASTA [Suspect]
     Indication: NEUTROPENIA
     Dosage: 6MG  DAY 2
     Dates: start: 20060223

REACTIONS (1)
  - FEBRILE NEUTROPENIA [None]
